FAERS Safety Report 23266466 (Version 1)
Quarter: 2023Q4

REPORT INFORMATION
  Report Type: Spontaneous
  Country: CA (occurrence: CA)
  Receive Date: 20231206
  Receipt Date: 20231206
  Transmission Date: 20240110
  Serious: Yes (Other)
  Sender: FDA-Public Use
  Company Number: CA-BAXTER-2023BAX037459

PATIENT

DRUGS (2)
  1. CYCLOPHOSPHAMIDE [Suspect]
     Active Substance: CYCLOPHOSPHAMIDE
     Indication: Nephrotic syndrome
     Dosage: UNK, DOSAGE FORM: NOT SPECIFIED
     Route: 048
  2. TRUXIMA [Suspect]
     Active Substance: RITUXIMAB-ABBS
     Indication: Nephrotic syndrome
     Dosage: 225 MILLIGRAM, 1 EVERY 1 WEEKS, DOSAGE FORM: SOLUTION INTRAVENOUS, SINGLE-DOSE VIAL - 10 MG/ML
     Route: 042

REACTIONS (2)
  - Nephrotic syndrome [Unknown]
  - Off label use [Unknown]
